FAERS Safety Report 6150892-3 (Version None)
Quarter: 2009Q2

REPORT INFORMATION
  Report Type: 
  Country: None (occurrence: None)
  Receive Date: 20090408
  Receipt Date: 20090324
  Transmission Date: 20091009
  Serious: Yes (Other)
  Sender: FDA-Public Use
  Company Number: 09-000482

PATIENT
  Age: 20 Year
  Sex: Female
  Weight: 61.2 kg

DRUGS (1)
  1. LOESTRIN 24 FE [Suspect]
     Indication: CONTRACEPTION
     Dosage: 20/1000UG, QD, ORAL
     Route: 048
     Dates: start: 20070101

REACTIONS (7)
  - DEPRESSION [None]
  - DISSOCIATION [None]
  - DIZZINESS [None]
  - DRUG DOSE OMISSION [None]
  - DRY MOUTH [None]
  - NAUSEA [None]
  - PANIC ATTACK [None]
